FAERS Safety Report 4758407-9 (Version None)
Quarter: 2005Q3

REPORT INFORMATION
  Report Type: 
  Country: None (occurrence: None)
  Receive Date: 20050826
  Receipt Date: 20050428
  Transmission Date: 20060218
  Serious: Yes (Other)
  Sender: FDA-Public Use
  Company Number: WAES 0505USA00023

PATIENT
  Sex: Female
  Weight: 79.3795 kg

DRUGS (7)
  1. ZETIA [Suspect]
     Dosage: 10 MG/DAILY/PO
     Route: 048
     Dates: start: 20050208, end: 20050328
  2. ZETIA [Suspect]
     Dosage: 10 MG/DAILY/PO
     Route: 048
     Dates: start: 20050516
  3. ASPIRIN [Concomitant]
  4. LIPITOR [Concomitant]
  5. SYNTRHOID [Concomitant]
  6. ZOLOFT [Concomitant]
  7. METOPROLOL [Concomitant]

REACTIONS (1)
  - ALANINE AMINOTRANSFERASE INCREASED [None]
